FAERS Safety Report 6223897-1 (Version None)
Quarter: 2009Q2

REPORT INFORMATION
  Report Type: 
  Country: None (occurrence: None)
  Receive Date: 20090612
  Receipt Date: 20090316
  Transmission Date: 20091009
  Serious: No
  Sender: FDA-Public Use
  Company Number: US-ABBOTT-09P-163-0560547-00

PATIENT
  Sex: Female
  Weight: 65.83 kg

DRUGS (3)
  1. HUMIRA [Suspect]
     Indication: CROHN'S DISEASE
     Dates: start: 20081201
  2. ACIPHEX [Concomitant]
     Indication: GASTRIC DISORDER
  3. MAGNESIUM OXIDE [Concomitant]
     Indication: DRUG USE FOR UNKNOWN INDICATION

REACTIONS (7)
  - ACNE [None]
  - COUGH [None]
  - CYST [None]
  - EPISTAXIS [None]
  - NASOPHARYNGITIS [None]
  - ORAL MUCOSAL ERYTHEMA [None]
  - ORAL PAIN [None]
